FAERS Safety Report 18282636 (Version 2)
Quarter: 2020Q4

REPORT INFORMATION
  Report Type: Spontaneous
  Country: JP (occurrence: JP)
  Receive Date: 20200918
  Receipt Date: 20201009
  Transmission Date: 20210113
  Serious: Yes (Other)
  Sender: FDA-Public Use
  Company Number: JP-AMGEN-JPNSP2020151389

PATIENT
  Age: 74 Year
  Sex: Female

DRUGS (4)
  1. VECTIBIX [Suspect]
     Active Substance: PANITUMUMAB
     Indication: HEPATIC CANCER METASTATIC
     Dosage: UNK
     Route: 050
  2. IRINOTECAN HYDROCHLORIDE. [Suspect]
     Active Substance: IRINOTECAN HYDROCHLORIDE
     Indication: HEPATIC CANCER METASTATIC
     Dosage: UNK
     Route: 065
  3. LEVOFOLINATE [CALCIUM LEVOFOLINATE] [Suspect]
     Active Substance: LEVOLEUCOVORIN CALCIUM
     Indication: HEPATIC CANCER METASTATIC
     Dosage: UNK
     Route: 065
  4. FLUOROURACIL. [Suspect]
     Active Substance: FLUOROURACIL
     Indication: HEPATIC CANCER METASTATIC
     Dosage: UNK
     Route: 065

REACTIONS (3)
  - Off label use [Unknown]
  - Myocardial infarction [Unknown]
  - Loss of consciousness [Unknown]
